FAERS Safety Report 10962744 (Version 1)
Quarter: 2015Q1

REPORT INFORMATION
  Report Type: Spontaneous
  Country: US (occurrence: US)
  Receive Date: 20150327
  Receipt Date: 20150327
  Transmission Date: 20150721
  Serious: Yes (Hospitalization)
  Sender: FDA-Public Use
  Company Number: US-ABBVIE-15P-163-1364417-00

PATIENT
  Age: 48 Year
  Sex: Male

DRUGS (2)
  1. TESTOSTERONE 17BETA-CYPIONATE [Suspect]
     Active Substance: TESTOSTERONE CYPIONATE
     Indication: PRODUCT USED FOR UNKNOWN INDICATION
     Route: 065
     Dates: start: 201106, end: 201303
  2. ANDROGEL [Suspect]
     Active Substance: TESTOSTERONE
     Indication: BLOOD TESTOSTERONE DECREASED
     Route: 065
     Dates: start: 201304

REACTIONS (9)
  - Pain [Unknown]
  - Fear [Unknown]
  - Social problem [Unknown]
  - Medical observation [Recovering/Resolving]
  - Physical disability [Recovering/Resolving]
  - Anxiety [Unknown]
  - Anhedonia [Unknown]
  - Pulmonary embolism [Unknown]
  - Economic problem [Unknown]

NARRATIVE: CASE EVENT DATE: 201304
